FAERS Safety Report 8503564-1 (Version None)
Quarter: 2012Q3

REPORT INFORMATION
  Report Type: 
  Country: None (occurrence: None)
  Receive Date: 20120711
  Receipt Date: 20120705
  Transmission Date: 20120928
  Serious: Yes (Hospitalization)
  Sender: FDA-Public Use
  Company Number: FR-PFIZER INC-2012160889

PATIENT
  Age: 69 Year
  Sex: Female

DRUGS (13)
  1. AUGMENTIN '125' [Concomitant]
     Dosage: UNK
     Dates: start: 20120403
  2. SETRON [Concomitant]
     Dosage: UNK
     Dates: start: 20120409
  3. PHENYTOIN SODIUM [Suspect]
     Indication: PROPHYLAXIS
     Dosage: UNK
     Dates: start: 20120409, end: 20120430
  4. ZYVOX [Suspect]
     Dosage: 600 MG, 2X/DAY
     Route: 048
     Dates: start: 20120409, end: 20120430
  5. LOVENOX [Concomitant]
     Dosage: 0.4 UNK, 1X/DAY
     Dates: start: 20120409
  6. KEPPRA [Concomitant]
     Dosage: UNK
     Dates: start: 20120514, end: 20120515
  7. CLAFORAN [Suspect]
     Dosage: UNK
     Dates: start: 20120406
  8. ACETAMINOPHEN [Suspect]
     Dosage: UNK
     Dates: start: 20120409
  9. GENTAMICIN [Concomitant]
     Dosage: UNK
     Dates: start: 20120403
  10. POTASSIUM CHLORIDE [Concomitant]
     Dosage: UNK
     Dates: start: 20120409
  11. MEROPENEM [Suspect]
     Dosage: 2 G, 3X/DAY
     Dates: start: 20120409, end: 20120430
  12. ACUPAN [Suspect]
     Dosage: UNK
     Dates: start: 20120409
  13. FOSFOMYCIN [Suspect]
     Dosage: UNK
     Dates: start: 20120406

REACTIONS (2)
  - STEVENS-JOHNSON SYNDROME [None]
  - DRUG RASH WITH EOSINOPHILIA AND SYSTEMIC SYMPTOMS [None]
